FAERS Safety Report 17377280 (Version 2)
Quarter: 2020Q2

REPORT INFORMATION
  Report Type: Spontaneous
  Country: US (occurrence: US)
  Receive Date: 20200206
  Receipt Date: 20200505
  Transmission Date: 20200713
  Serious: No
  Sender: FDA-Public Use
  Company Number: US-PFIZER INC-2020049128

PATIENT
  Age: 65 Year
  Sex: Female
  Weight: 155 kg

DRUGS (2)
  1. XELJANZ XR [Suspect]
     Active Substance: TOFACITINIB CITRATE
     Indication: RHEUMATOID ARTHRITIS
     Dosage: 20 MG, ONCE A DAY
     Dates: start: 2018
  2. XELJANZ XR [Suspect]
     Active Substance: TOFACITINIB CITRATE
     Dosage: UNK
     Dates: start: 201911

REACTIONS (3)
  - Stomatitis [Unknown]
  - Oral herpes [Unknown]
  - Drug hypersensitivity [Recovered/Resolved]

NARRATIVE: CASE EVENT DATE: 202002
